FAERS Safety Report 9610536 (Version 3)
Quarter: 2014Q2

REPORT INFORMATION
  Report Type: Spontaneous
  Country: US (occurrence: US)
  Receive Date: 20131009
  Receipt Date: 20140402
  Transmission Date: 20141212
  Serious: Yes (Hospitalization)
  Sender: FDA-Public Use
  Company Number: US-B.I. PHARMACEUTICALS,INC./RIDGEFIELD-2013-BI-31174BP

PATIENT
  Sex: Male
  Weight: 68 kg

DRUGS (20)
  1. PRADAXA [Suspect]
     Indication: ATRIAL FIBRILLATION
     Route: 065
     Dates: start: 201108, end: 201112
  2. PRADAXA [Suspect]
     Indication: ANTICOAGULANT THERAPY
  3. REMERON [Concomitant]
     Dosage: 15 MG
     Route: 048
  4. GLUCOPHAGE [Concomitant]
     Dosage: 1000 MG
     Route: 048
  5. IMDUR [Concomitant]
     Dosage: 30 MG
     Route: 048
  6. NIACIN [Concomitant]
     Dosage: 500 MG
     Route: 048
  7. APRESOLINE [Concomitant]
     Dosage: 150 MG
     Route: 048
  8. LANOXIN [Concomitant]
     Dosage: 125 MCG
     Route: 048
  9. COREG [Concomitant]
     Dosage: 6.25 MG
     Route: 048
  10. KEPPRA [Concomitant]
     Route: 048
  11. NITROSTAT [Concomitant]
     Indication: CHEST PAIN
     Route: 060
  12. LASIX [Concomitant]
     Dosage: 20 MG
     Route: 048
     Dates: start: 20090929
  13. PRAVACHOL [Concomitant]
     Dosage: 80 MG
     Route: 048
     Dates: start: 20090929
  14. OMEPRAZOLE [Concomitant]
     Dosage: 20 MG
     Route: 048
  15. DILANTIN [Concomitant]
     Dosage: 400 MG
     Route: 048
  16. ATIVAN [Concomitant]
     Dosage: 1 MG
     Route: 048
  17. ASPIRIN [Concomitant]
     Route: 065
  18. ARTHROTEC [Concomitant]
     Route: 048
  19. LEVOTHYROXINE [Concomitant]
     Route: 065
  20. PLAVIX [Concomitant]
     Route: 065

REACTIONS (3)
  - Subdural haematoma [Unknown]
  - Subdural haemorrhage [Unknown]
  - Peripheral ischaemia [Unknown]
